FAERS Safety Report 25338890 (Version 2)
Quarter: 2025Q2

REPORT INFORMATION
  Report Type: Report from Study
  Country: US (occurrence: US)
  Receive Date: 20250520
  Receipt Date: 20250523
  Transmission Date: 20250716
  Serious: Yes (Hospitalization, Other)
  Sender: JOHNSON AND JOHNSON
  Company Number: US-JNJFOC-20250360800

PATIENT
  Age: 71 Year
  Sex: Female
  Weight: 86.182 kg

DRUGS (10)
  1. UPTRAVI [Suspect]
     Active Substance: SELEXIPAG
     Indication: Pulmonary arterial hypertension
     Route: 048
     Dates: start: 20250318
  2. UPTRAVI [Suspect]
     Active Substance: SELEXIPAG
     Indication: Pulmonary hypertension
     Route: 048
  3. UPTRAVI [Suspect]
     Active Substance: SELEXIPAG
     Dosage: 400MCG, 600MCG
     Route: 048
  4. UPTRAVI [Suspect]
     Active Substance: SELEXIPAG
     Route: 048
  5. UPTRAVI [Suspect]
     Active Substance: SELEXIPAG
     Route: 048
  6. UPTRAVI [Suspect]
     Active Substance: SELEXIPAG
     Route: 048
  7. OPSUMIT [Suspect]
     Active Substance: MACITENTAN
     Indication: Pulmonary arterial hypertension
     Route: 048
     Dates: start: 202411
  8. LIDOCAINE [Suspect]
     Active Substance: LIDOCAINE
     Indication: Product used for unknown indication
  9. SILDENAFIL CITRATE [Concomitant]
     Active Substance: SILDENAFIL CITRATE
     Indication: Product used for unknown indication
  10. AMLODIPINE [Concomitant]
     Active Substance: AMLODIPINE BESYLATE
     Indication: Product used for unknown indication

REACTIONS (26)
  - Blood potassium abnormal [Unknown]
  - Pneumonia [Unknown]
  - Blood pressure systolic decreased [Not Recovered/Not Resolved]
  - Headache [Unknown]
  - Vomiting [Unknown]
  - Nausea [Unknown]
  - Haemoglobin decreased [Unknown]
  - Oxygen saturation decreased [Unknown]
  - Adverse drug reaction [Unknown]
  - Oxygen consumption increased [Unknown]
  - Diarrhoea [Not Recovered/Not Resolved]
  - Anxiety [Unknown]
  - Pain in extremity [Unknown]
  - Dyspnoea exertional [Unknown]
  - Oedema peripheral [Not Recovered/Not Resolved]
  - Pain in jaw [Not Recovered/Not Resolved]
  - Pain [Unknown]
  - Urinary incontinence [Recovered/Resolved]
  - Dizziness [Unknown]
  - Arthropathy [Recovered/Resolved]
  - Abdominal pain upper [Unknown]
  - Back pain [Unknown]
  - Fatigue [Unknown]
  - Bone pain [Unknown]
  - General physical health deterioration [Unknown]
  - Presyncope [Unknown]

NARRATIVE: CASE EVENT DATE: 20250319
